FAERS Safety Report 5075731-3 (Version None)
Quarter: 2006Q3

REPORT INFORMATION
  Report Type: 
  Country: None (occurrence: None)
  Receive Date: 20060807
  Receipt Date: 20060807
  Transmission Date: 20061208
  Serious: Yes (Life-Threatening)
  Sender: FDA-Public Use
  Company Number: None

PATIENT
  Age: 84 Year
  Sex: Female
  Weight: 57 kg

DRUGS (2)
  1. REMICADE [Suspect]
     Indication: RHEUMATOID ARTHRITIS
     Dosage: 500 MG IV Q 6 W
     Route: 042
     Dates: start: 20040301
  2. METHOTREXATE [Suspect]
     Dosage: 17.5 MG PO QW
     Route: 048

REACTIONS (1)
  - B-CELL LYMPHOMA [None]
